FAERS Safety Report 7207537-0 (Version None)
Quarter: 2011Q1

REPORT INFORMATION
  Report Type: 
  Country: None (occurrence: None)
  Receive Date: 20110103
  Receipt Date: 20101116
  Transmission Date: 20110831
  Serious: No
  Sender: FDA-Public Use
  Company Number: US-JNJFOC-20101202714

PATIENT
  Age: 22 Year
  Sex: Female

DRUGS (2)
  1. INVEGA [Suspect]
     Indication: PRODUCT USED FOR UNKNOWN INDICATION
     Route: 048
  2. INVEGA [Suspect]
     Route: 048

REACTIONS (4)
  - GALACTORRHOEA [None]
  - BREAST ENLARGEMENT [None]
  - BLOOD PROLACTIN INCREASED [None]
  - AMENORRHOEA [None]
